FAERS Safety Report 7125964-7 (Version None)
Quarter: 2010Q4

REPORT INFORMATION
  Report Type: 
  Country: None (occurrence: None)
  Receive Date: 20101129
  Receipt Date: 20101117
  Transmission Date: 20110411
  Serious: Yes (Other)
  Sender: FDA-Public Use
  Company Number: US-JNJFOC-20101107172

PATIENT
  Sex: Female
  Weight: 62.6 kg

DRUGS (9)
  1. FENTANYL [Suspect]
     Indication: FIBROMYALGIA
     Route: 062
  2. FENTANYL [Suspect]
     Route: 062
  3. FENTANYL [Suspect]
     Route: 062
  4. FENTANYL-100 [Suspect]
     Indication: FIBROMYALGIA
     Route: 062
  5. FENTANYL-100 [Suspect]
     Route: 062
  6. FENTANYL-100 [Suspect]
     Route: 062
  7. FENTANYL-100 [Suspect]
     Route: 062
  8. ULTRAM [Suspect]
     Indication: ILL-DEFINED DISORDER
     Route: 065
  9. DEXEDRINE [Suspect]
     Indication: ILL-DEFINED DISORDER
     Route: 065

REACTIONS (9)
  - DRUG ADMINISTERED AT INAPPROPRIATE SITE [None]
  - DRUG INEFFECTIVE [None]
  - EXOSTOSIS [None]
  - FATIGUE [None]
  - HYPERTENSION [None]
  - INTERVERTEBRAL DISC DEGENERATION [None]
  - PRODUCT ADHESION ISSUE [None]
  - SPINAL COLUMN STENOSIS [None]
  - WRONG TECHNIQUE IN DRUG USAGE PROCESS [None]
